FAERS Safety Report 14206855 (Version 1)
Quarter: 2017Q4

REPORT INFORMATION
  Report Type: Spontaneous
  Country: CN (occurrence: CN)
  Receive Date: 20171121
  Receipt Date: 20171121
  Transmission Date: 20180321
  Serious: Yes (Life-Threatening, Hospitalization)
  Sender: FDA-Public Use
  Company Number: CN-ROCHE-2021187

PATIENT
  Age: 59 Year
  Sex: Male

DRUGS (7)
  1. CALCIUM FOLINATE [Concomitant]
     Active Substance: LEUCOVORIN CALCIUM
     Dosage: PART OF 5 CYCLES OF FOLFIRI WITH LAST DOSE GIVEN ON 10/APR/2013
     Route: 065
     Dates: start: 20130117, end: 20130410
  2. CALCIUM FOLINATE [Concomitant]
     Active Substance: LEUCOVORIN CALCIUM
     Indication: COLORECTAL CANCER METASTATIC
     Dosage: ON DAY 1, TOTAL 4 CYCLES
     Route: 041
     Dates: start: 20120821, end: 20121009
  3. OXALIPLATIN. [Concomitant]
     Active Substance: OXALIPLATIN
     Indication: COLORECTAL CANCER METASTATIC
     Dosage: ON FIRST DAY OF EACH CYCLE
     Route: 065
     Dates: start: 20120821, end: 20121009
  4. AVASTIN [Suspect]
     Active Substance: BEVACIZUMAB
     Indication: COLORECTAL CANCER METASTATIC
     Dosage: ON DAY 1, TOTAL 4 CYCLES
     Route: 041
     Dates: start: 20120821, end: 20121009
  5. FLUOROURACIL. [Concomitant]
     Active Substance: FLUOROURACIL
     Dosage: PART OF 5 CYCLES OF FOLFIRI WITH LAST DOSE GIVEN ON 10/APR/2013
     Route: 065
     Dates: start: 20130117, end: 20130410
  6. FLUOROURACIL. [Concomitant]
     Active Substance: FLUOROURACIL
     Indication: COLORECTAL CANCER METASTATIC
     Dosage: FOR 44 HOURS IN EACH CYCLE
     Route: 042
     Dates: start: 20121009
  7. OXALIPLATIN. [Concomitant]
     Active Substance: OXALIPLATIN
     Dosage: PART OF 5 CYCLES OF FOLFIRI WITH LAST DOSE GIVEN ON 10/APR/2013
     Route: 065
     Dates: start: 20130117, end: 20130410

REACTIONS (6)
  - Peritonitis [Recovered/Resolved]
  - Small intestinal perforation [Recovered/Resolved]
  - Abdominal adhesions [Recovered/Resolved]
  - Ascites [Recovered/Resolved]
  - Rectal perforation [Recovered/Resolved]
  - Intestinal obstruction [Recovered/Resolved]

NARRATIVE: CASE EVENT DATE: 20121025
